FAERS Safety Report 7752537 (Version 5)
Quarter: 2019Q3

REPORT INFORMATION
  Report Type: Report from Study
  Country: NL (occurrence: NL)
  Receive Date: 20110107
  Receipt Date: 20190915
  Transmission Date: 20191005
  Serious: Yes (Death, Hospitalization)
  Sender: FDA-Public Use
  Company Number: NL-CELGENEUS-114-20785-10110878

PATIENT
  Age: 68 Year
  Sex: Male
  Weight: 67 kg

DRUGS (15)
  1. MELPHALAN. [Suspect]
     Active Substance: MELPHALAN
     Indication: PLASMA CELL MYELOMA
     Dosage: 12 MILLIGRAM
     Route: 048
     Dates: start: 20100915
  2. ASCAL [Concomitant]
     Indication: PROPHYLAXIS
     Dosage: 100 MILLIGRAM
     Route: 048
     Dates: start: 20100915, end: 20101029
  3. PARACETAMOL [Concomitant]
     Active Substance: ACETAMINOPHEN
     Indication: PYREXIA
     Dosage: 2 GRAM
     Route: 048
     Dates: start: 20100915, end: 201010
  4. THALIDOMIDE [Suspect]
     Active Substance: THALIDOMIDE
     Indication: PLASMA CELL MYELOMA
     Dosage: 100 MILLIGRAM
     Route: 048
     Dates: start: 20100915
  5. THALIDOMIDE [Suspect]
     Active Substance: THALIDOMIDE
     Dosage: 100 MILLIGRAM
     Route: 048
     Dates: start: 20101014, end: 20101025
  6. METOCLOPRAMIDE. [Concomitant]
     Active Substance: METOCLOPRAMIDE
     Indication: NAUSEA
     Dosage: 30 MILLIGRAM
     Route: 048
     Dates: start: 20101017, end: 20101029
  7. LACTULOSE. [Concomitant]
     Active Substance: LACTULOSE
     Indication: CONSTIPATION
     Dosage: 30 MILLILITER
     Route: 048
     Dates: start: 20100915, end: 20101024
  8. PREDNISONE. [Suspect]
     Active Substance: PREDNISONE
     Indication: PLASMA CELL MYELOMA
     Dosage: 135 MILLIGRAM
     Route: 048
     Dates: start: 20100915
  9. PREDNISONE. [Suspect]
     Active Substance: PREDNISONE
     Dosage: 135 MILLIGRAM
     Route: 048
     Dates: start: 20101014, end: 20101017
  10. THALIDOMIDE [Suspect]
     Active Substance: THALIDOMIDE
     Dosage: 100 MILLIGRAM
     Route: 048
     Dates: end: 20101117
  11. MELPHALAN. [Suspect]
     Active Substance: MELPHALAN
     Dosage: 12 MILLIGRAM
     Route: 048
     Dates: start: 20101014, end: 20101017
  12. NITRAZEPAM [Concomitant]
     Active Substance: NITRAZEPAM
     Indication: INSOMNIA
     Route: 048
     Dates: start: 201009, end: 20101024
  13. MELPHALAN. [Suspect]
     Active Substance: MELPHALAN
     Dosage: 12 MILLIGRAM
     Route: 048
     Dates: end: 20101117
  14. PREDNISONE. [Suspect]
     Active Substance: PREDNISONE
     Dosage: 135 MILLIGRAM
     Route: 048
     Dates: end: 20101117
  15. OMEPRAZOLE. [Concomitant]
     Active Substance: OMEPRAZOLE
     Indication: PROPHYLAXIS
     Dosage: 40 MILLIGRAM
     Route: 048
     Dates: start: 20101021, end: 20101029

REACTIONS (2)
  - Small intestine carcinoma [Fatal]
  - Constipation [Recovered/Resolved with Sequelae]

NARRATIVE: CASE EVENT DATE: 20101025
